FAERS Safety Report 19099785 (Version 3)
Quarter: 2021Q3

REPORT INFORMATION
  Report Type: Report from Study
  Country: US (occurrence: US)
  Receive Date: 20210407
  Receipt Date: 20210831
  Transmission Date: 20211014
  Serious: No
  Sender: FDA-Public Use
  Company Number: NVSC2021US071651

PATIENT
  Sex: Female

DRUGS (1)
  1. COSENTYX [Suspect]
     Active Substance: SECUKINUMAB
     Indication: PSORIASIS
     Dosage: 300 MG, QW
     Route: 058
     Dates: start: 20210326

REACTIONS (4)
  - Vessel puncture site bruise [Unknown]
  - Vessel puncture site injury [Unknown]
  - Vessel puncture site pain [Unknown]
  - Vessel puncture site haemorrhage [Unknown]
